FAERS Safety Report 10874419 (Version 1)
Quarter: 2015Q1

REPORT INFORMATION
  Report Type: Report from Study
  Country: US (occurrence: US)
  Receive Date: 20150227
  Receipt Date: 20150227
  Transmission Date: 20150721
  Serious: Yes (Death, Other)
  Sender: FDA-Public Use
  Company Number: US-BAYER-2015-028629

PATIENT
  Age: 13 Year

DRUGS (1)
  1. SORAFENIB [Suspect]
     Active Substance: SORAFENIB
     Indication: ACUTE MYELOID LEUKAEMIA RECURRENT
     Dosage: DAILY DOSE 75 MG/M2

REACTIONS (5)
  - Bone marrow failure [None]
  - Rash [None]
  - Off label use [None]
  - Acute myeloid leukaemia [Fatal]
  - Palmar-plantar erythrodysaesthesia syndrome [None]
